FAERS Safety Report 24191166 (Version 1)
Quarter: 2024Q3

REPORT INFORMATION
  Report Type: Report from Study
  Country: US (occurrence: None)
  Receive Date: 20240808
  Receipt Date: 20240808
  Transmission Date: 20241016
  Serious: Yes (Other)
  Sender: ASTRAZENECA
  Company Number: 2022A333594

PATIENT
  Sex: Female
  Weight: 70.3 kg

DRUGS (1)
  1. LYNPARZA [Suspect]
     Active Substance: OLAPARIB
     Indication: Ovarian cancer
     Route: 048

REACTIONS (4)
  - Feeling abnormal [Unknown]
  - Somnolence [Unknown]
  - Presyncope [Unknown]
  - Dyspnoea [Unknown]
